FAERS Safety Report 8767209 (Version 2)
Quarter: 2012Q4

REPORT INFORMATION
  Report Type: 
  Country: US (occurrence: US)
  Receive Date: 20120904
  Receipt Date: 20121120
  Transmission Date: 20130627
  Serious: Yes (Other)
  Sender: FDA-Public Use
  Company Number: US-PFIZER INC-2012213660

PATIENT
  Age: 82 Year
  Sex: Female
  Weight: 67.12 kg

DRUGS (2)
  1. TOVIAZ [Suspect]
     Indication: OVERACTIVE BLADDER
     Dosage: 4 mg, 1x/day
     Route: 048
     Dates: start: 201207, end: 20120828
  2. IBUPROFEN [Concomitant]
     Indication: ARTHRITIS
     Dosage: UNK, as needed

REACTIONS (2)
  - Urinary retention [Not Recovered/Not Resolved]
  - Vision blurred [Recovered/Resolved]
